FAERS Safety Report 5182624-X (Version None)
Quarter: 2006Q4

REPORT INFORMATION
  Report Type: 
  Country: None (occurrence: None)
  Receive Date: 20061220
  Receipt Date: 20061211
  Transmission Date: 20070319
  Serious: Yes (Other)
  Sender: FDA-Public Use
  Company Number: US-JNJFOC-20061203039

PATIENT
  Sex: Female
  Weight: 111.13 kg

DRUGS (5)
  1. TOPAMAX [Suspect]
     Indication: HEADACHE
     Route: 048
  2. TOPAMAX [Suspect]
     Indication: MIGRAINE PROPHYLAXIS
     Route: 048
  3. PLAVIX [Concomitant]
     Indication: CEREBROVASCULAR ACCIDENT
  4. EFFEXOR [Concomitant]
     Indication: DEPRESSION
  5. CLONOPIN [Concomitant]
     Indication: DEPRESSION

REACTIONS (4)
  - CATARACT [None]
  - DEPRESSION [None]
  - GLAUCOMA [None]
  - WEIGHT DECREASED [None]
